FAERS Safety Report 14938681 (Version 2)
Quarter: 2025Q4

REPORT INFORMATION
  Report Type: Spontaneous
  Country: US (occurrence: US)
  Receive Date: 20180525
  Receipt Date: 20251121
  Transmission Date: 20260118
  Serious: Yes (Other)
  Sender: QILU PHARMACEUTICAL
  Company Number: None

PATIENT
  Age: 56 Year
  Sex: Female

DRUGS (1)
  1. OXALIPLATIN [Suspect]
     Active Substance: OXALIPLATIN
     Indication: Rectal adenocarcinoma
     Dosage: UNK
     Route: 065

REACTIONS (3)
  - Haematemesis [Recovered/Resolved]
  - Immune thrombocytopenia [Recovered/Resolved]
  - Nausea [Recovered/Resolved]
